FAERS Safety Report 23275571 (Version 1)
Quarter: 2023Q4

REPORT INFORMATION
  Report Type: Spontaneous
  Country: ES (occurrence: ES)
  Receive Date: 20231208
  Receipt Date: 20231208
  Transmission Date: 20240109
  Serious: Yes (Hospitalization)
  Sender: FDA-Public Use
  Company Number: ES-MYLANLABS-2023M1129086

PATIENT
  Age: 37 Year
  Sex: Male

DRUGS (4)
  1. ARIPIPRAZOLE [Suspect]
     Active Substance: ARIPIPRAZOLE
     Indication: Schizophrenia
     Dosage: 800 MILLIGRAM (DELAYED-RELEASE)
     Route: 065
  2. BROMOCRIPTINE [Suspect]
     Active Substance: BROMOCRIPTINE
     Indication: Neuroleptic malignant syndrome
     Dosage: 5 MILLIGRAM, Q8H
     Route: 065
  3. DANTROLENE [Concomitant]
     Active Substance: DANTROLENE
     Indication: Neuroleptic malignant syndrome
     Dosage: 60 MILLIGRAM, Q6H
     Route: 042
  4. DIAZEPAM [Concomitant]
     Active Substance: DIAZEPAM
     Indication: Neuroleptic malignant syndrome
     Dosage: UNK
     Route: 048

REACTIONS (3)
  - Neuroleptic malignant syndrome [Recovering/Resolving]
  - Mental disorder [Recovering/Resolving]
  - Off label use [Unknown]
